FAERS Safety Report 7799982 (Version 3)
Quarter: 2012Q4

REPORT INFORMATION
  Report Type: 
  Country: US (occurrence: US)
  Receive Date: 20110204
  Receipt Date: 20121011
  Transmission Date: 20130627
  Serious: Yes (Death, Hospitalization, Other)
  Sender: FDA-Public Use
  Company Number: US-009507513-1101USA03445

PATIENT
  Age: 64 Year
  Sex: Female
  Weight: 95.2 kg

DRUGS (4)
  1. DECADRON TABLETS [Suspect]
     Indication: MULTIPLE MYELOMA
     Dosage: 20 mg, QW
     Route: 048
     Dates: start: 20100731, end: 20100828
  2. DECADRON TABLETS [Suspect]
     Dosage: 12 mg, qd
     Route: 048
     Dates: start: 20101112, end: 20101115
  3. REVLIMID [Suspect]
     Indication: MULTIPLE MYELOMA
     Dosage: 25 mg, qd
     Dates: start: 20100815
  4. ALKERAN (MELPHALAN) [Concomitant]
     Indication: MULTIPLE MYELOMA
     Dosage: 14 mg, qd
     Dates: start: 20101112, end: 20101115

REACTIONS (17)
  - Sepsis [Fatal]
  - Renal failure acute [Fatal]
  - Blood fibrinogen decreased [Fatal]
  - Acidosis [Fatal]
  - Prothrombin time prolonged [Fatal]
  - Hypoglycaemia [Fatal]
  - International normalised ratio increased [Fatal]
  - Confusional state [Fatal]
  - Blood albumin decreased [Fatal]
  - Hypotension [Fatal]
  - Blood alkaline phosphatase increased [Fatal]
  - Blood creatinine increased [Fatal]
  - White blood cell count decreased [Fatal]
  - Neutrophil count decreased [Fatal]
  - Platelet count decreased [Fatal]
  - Haemoglobin decreased [Fatal]
  - Oedema peripheral [Fatal]
